FAERS Safety Report 6878278-4 (Version None)
Quarter: 2010Q3

REPORT INFORMATION
  Report Type: 
  Country: None (occurrence: None)
  Receive Date: 20100728
  Receipt Date: 20100716
  Transmission Date: 20110219
  Serious: Yes (Hospitalization)
  Sender: FDA-Public Use
  Company Number: GB-PFIZER INC-2010089455

PATIENT
  Age: 68 Year
  Sex: Female

DRUGS (7)
  1. ATORVASTATIN CALCIUM [Suspect]
     Indication: HYPERCHOLESTEROLAEMIA
     Dosage: 40 MG, 1X/DAY
     Route: 048
     Dates: start: 20100601, end: 20100706
  2. BENDROFLUMETHIAZIDE [Concomitant]
     Dosage: 2.5 MG, 1X/DAY
     Route: 048
  3. BISOPROLOL [Concomitant]
     Dosage: 1.25 MG, 1X/DAY
     Route: 048
     Dates: start: 20100601
  4. CILOSTAZOL [Concomitant]
     Dosage: 100 MG, 2X/DAY
     Route: 048
  5. LEVOTHYROXINE [Concomitant]
     Dosage: 125 UG, 1X/DAY
     Route: 048
  6. OMEPRAZOLE [Concomitant]
     Dosage: 20 MG, 1X/DAY
     Route: 048
  7. PHENYTOIN [Concomitant]
     Dosage: 300 MG, 1X/DAY
     Route: 048

REACTIONS (1)
  - JAUNDICE CHOLESTATIC [None]
